FAERS Safety Report 12543292 (Version 2)
Quarter: 2016Q3

REPORT INFORMATION
  Report Type: Spontaneous
  Country: CA (occurrence: CA)
  Receive Date: 20160711
  Receipt Date: 20160815
  Transmission Date: 20161109
  Serious: Yes (Hospitalization, Other)
  Sender: FDA-Public Use
  Company Number: CA-TEVA-675196USA

PATIENT
  Age: 65 Year
  Sex: Male

DRUGS (9)
  1. CLARITHROMYCIN. [Suspect]
     Active Substance: CLARITHROMYCIN
     Indication: OROPHARYNGEAL PAIN
  2. TRIMETHOPRIM. [Concomitant]
     Active Substance: TRIMETHOPRIM
     Indication: ANTIFUNGAL PROPHYLAXIS
     Dosage: DOUBLE-STRENGTH
  3. RIVAROXABAN [Interacting]
     Active Substance: RIVAROXABAN
  4. CLARITHROMYCIN. [Interacting]
     Active Substance: CLARITHROMYCIN
     Indication: DYSPNOEA
  5. RITUXIMAB [Concomitant]
     Active Substance: RITUXIMAB
     Route: 042
  6. PANTOPRAZOLE [Concomitant]
     Active Substance: PANTOPRAZOLE SODIUM
  7. TIOTROPIUM [Concomitant]
     Active Substance: TIOTROPIUM
  8. CLARITHROMYCIN. [Interacting]
     Active Substance: CLARITHROMYCIN
     Indication: COUGH
  9. PREDNISONE. [Concomitant]
     Active Substance: PREDNISONE

REACTIONS (9)
  - Haemoptysis [Recovered/Resolved]
  - Haemorrhage intracranial [Recovered/Resolved]
  - Epistaxis [Recovered/Resolved]
  - Syncope [Recovered/Resolved]
  - Drug interaction [Recovered/Resolved]
  - Pulmonary haemorrhage [Recovered/Resolved]
  - Subarachnoid haemorrhage [Recovering/Resolving]
  - Headache [Recovered/Resolved]
  - Self-medication [Recovered/Resolved]
